FAERS Safety Report 13966641 (Version 1)
Quarter: 2017Q3

REPORT INFORMATION
  Report Type: Spontaneous
  Country: US (occurrence: US)
  Receive Date: 20170914
  Receipt Date: 20170914
  Transmission Date: 20171128
  Serious: Yes (Other)
  Sender: FDA-Public Use
  Company Number: US-AMGEN-USASP2017135873

PATIENT
  Sex: Female

DRUGS (3)
  1. XELJANZ [Suspect]
     Active Substance: TOFACITINIB CITRATE
     Indication: PRODUCT USED FOR UNKNOWN INDICATION
     Dosage: 5 MG, UNK
     Route: 065
  2. METHOTREXATE. [Suspect]
     Active Substance: METHOTREXATE
     Indication: PRODUCT USED FOR UNKNOWN INDICATION
     Dosage: UNK
     Route: 065
  3. ENBREL [Suspect]
     Active Substance: ETANERCEPT
     Indication: PRODUCT USED FOR UNKNOWN INDICATION
     Dosage: UNK
     Route: 065

REACTIONS (15)
  - Gastrointestinal disorder [Unknown]
  - Spinal disorder [Unknown]
  - Musculoskeletal stiffness [Unknown]
  - Swelling [Unknown]
  - Glucose tolerance impaired [Recovered/Resolved]
  - Drug effect decreased [Unknown]
  - Osteoporosis [Unknown]
  - Haematocrit decreased [Unknown]
  - Weight decreased [Unknown]
  - Osteopenia [Unknown]
  - Joint crepitation [Unknown]
  - C-reactive protein increased [Unknown]
  - Finger amputation [Unknown]
  - Synovial cyst [Unknown]
  - Pain [Unknown]
